FAERS Safety Report 23792097 (Version 2)
Quarter: 2024Q2

REPORT INFORMATION
  Report Type: Other
  Country: US (occurrence: US)
  Receive Date: 20240429
  Receipt Date: 20240508
  Transmission Date: 20240715
  Serious: Yes (Other)
  Sender: FDA-Public Use
  Company Number: US-ALVOGEN-2024094466

PATIENT
  Age: 67 Year
  Sex: Female

DRUGS (2)
  1. DAPSONE [Suspect]
     Active Substance: DAPSONE
     Indication: Subcorneal pustular dermatosis
  2. DAPSONE [Suspect]
     Active Substance: DAPSONE
     Indication: Subcorneal pustular dermatosis

REACTIONS (2)
  - Drug reaction with eosinophilia and systemic symptoms [Recovered/Resolved]
  - Off label use [Unknown]
